FAERS Safety Report 5982184-7 (Version None)
Quarter: 2008Q4

REPORT INFORMATION
  Report Type: 
  Country: None (occurrence: None)
  Receive Date: 20081208
  Receipt Date: 20081203
  Transmission Date: 20090506
  Serious: Yes (Death, Hospitalization)
  Sender: FDA-Public Use
  Company Number: A0759376A

PATIENT
  Age: 77 Year
  Sex: Female
  Weight: 85 kg

DRUGS (4)
  1. SERETIDE [Suspect]
     Route: 065
     Dates: start: 20080801, end: 20080921
  2. ATACAND [Concomitant]
     Dates: start: 20080401
  3. SIBELIUM [Concomitant]
     Dates: start: 20071101, end: 20081021
  4. UNSPECIFIED MEDICATION [Concomitant]
     Dates: start: 20070601, end: 20081021

REACTIONS (2)
  - ADVERSE EVENT [None]
  - LUNG NEOPLASM MALIGNANT [None]
